FAERS Safety Report 9906342 (Version 2)
Quarter: 2014Q1

REPORT INFORMATION
  Report Type: Report from Study
  Country: JP (occurrence: JP)
  Receive Date: 20140218
  Receipt Date: 20140226
  Transmission Date: 20141002
  Serious: Yes (Hospitalization)
  Sender: FDA-Public Use
  Company Number: JP-SA-2014SA017368

PATIENT
  Age: 69 Year
  Sex: Male
  Weight: 60.1 kg

DRUGS (12)
  1. DOCETAXEL [Suspect]
     Indication: NON-SMALL CELL LUNG CANCER STAGE IV
     Route: 065
     Dates: start: 20130612, end: 20130612
  2. DOCETAXEL [Suspect]
     Indication: NON-SMALL CELL LUNG CANCER STAGE IV
     Route: 065
     Dates: start: 20131231, end: 20131231
  3. BLINDED THERAPY [Suspect]
     Indication: METASTATIC CARCINOMA OF THE BLADDER
     Route: 065
     Dates: start: 20130612, end: 20130612
  4. BLINDED THERAPY [Suspect]
     Indication: METASTATIC CARCINOMA OF THE BLADDER
     Route: 065
     Dates: start: 20131231, end: 20131231
  5. MAGLAX [Concomitant]
     Indication: CONSTIPATION
     Dates: start: 20121217
  6. LIDOMEX [Concomitant]
     Indication: DERMATITIS ALLERGIC
     Dates: start: 20130521
  7. RINDERON [Concomitant]
     Indication: DERMATITIS ALLERGIC
     Dates: start: 20130618
  8. MUCODYNE [Concomitant]
     Indication: CHRONIC OBSTRUCTIVE PULMONARY DISEASE
     Dates: start: 20130816
  9. ONBREZ BREEZHALER [Concomitant]
     Indication: CHRONIC OBSTRUCTIVE PULMONARY DISEASE
     Dates: start: 20130816
  10. SPIRIVA [Concomitant]
     Indication: CHRONIC OBSTRUCTIVE PULMONARY DISEASE
     Dates: start: 20130816
  11. CRAVIT [Concomitant]
     Indication: EYE DISCHARGE
     Dates: start: 20130816
  12. AZUNOL [Concomitant]
     Indication: STOMATITIS
     Dates: start: 20131118

REACTIONS (1)
  - Pneumothorax [Recovered/Resolved]
